FAERS Safety Report 5832764-4 (Version None)
Quarter: 2008Q3

REPORT INFORMATION
  Report Type: 
  Country: None (occurrence: None)
  Receive Date: 20080804
  Receipt Date: 20080725
  Transmission Date: 20090109
  Serious: Yes (Other)
  Sender: FDA-Public Use
  Company Number: US-PFIZER INC-2008051898

PATIENT
  Sex: Male
  Weight: 164 kg

DRUGS (5)
  1. CELEBREX [Suspect]
     Indication: SPINAL FRACTURE
     Route: 048
  2. CELEBREX [Suspect]
     Indication: ARTHRITIS
  3. CELEBREX [Suspect]
     Indication: INFLAMMATION
  4. PERCOCET [Concomitant]
  5. DOCUSATE SODIUM [Concomitant]

REACTIONS (3)
  - ANGER [None]
  - IRRITABILITY [None]
  - PYREXIA [None]
